FAERS Safety Report 9840344 (Version 2)
Quarter: 2014Q1

REPORT INFORMATION
  Report Type: Report from Study
  Country: HU (occurrence: HU)
  Receive Date: 20140124
  Receipt Date: 20140124
  Transmission Date: 20141002
  Serious: Yes (Hospitalization)
  Sender: FDA-Public Use
  Company Number: HU-VERTEX PHARMACEUTICALS INC-2013-011769

PATIENT
  Age: 58 Year
  Sex: Female

DRUGS (3)
  1. INCIVO [Suspect]
     Indication: HEPATITIS C
     Dosage: 12WEEK THERAPY COMPLETED
     Route: 065
     Dates: start: 20131025, end: 20140117
  2. PEGASYS [Suspect]
     Indication: HEPATITIS C
     Dosage: DOSAGE FORM: INJECTION
  3. PEGASYS [Suspect]
     Dosage: DOSAGE FORM: INJECTION
     Route: 065

REACTIONS (10)
  - Headache [Recovered/Resolved]
  - Hypotonia [Recovered/Resolved]
  - Dizziness [Recovered/Resolved]
  - Chest discomfort [Unknown]
  - Fatigue [Unknown]
  - Leukocytosis [Unknown]
  - Tachycardia [Unknown]
  - Rash [Recovered/Resolved]
  - Nausea [Unknown]
  - Pruritus [Unknown]
